FAERS Safety Report 21265747 (Version 8)
Quarter: 2023Q1

REPORT INFORMATION
  Report Type: Spontaneous
  Country: US (occurrence: US)
  Receive Date: 20220829
  Receipt Date: 20230109
  Transmission Date: 20230417
  Serious: Yes (Other)
  Sender: FDA-Public Use
  Company Number: US-PFIZER INC-202201099675

PATIENT
  Age: 61 Year
  Sex: Female

DRUGS (18)
  1. IBRANCE [Suspect]
     Active Substance: PALBOCICLIB
     Dosage: 125 MG, CYCLIC (TAKE 1 CAPSULE DAILY ON DAYS 1 THROUGH 21 OF EACH 28-DAY CYCLE)
     Route: 048
     Dates: start: 20220815
  2. IBRANCE [Suspect]
     Active Substance: PALBOCICLIB
     Dosage: UNK
     Dates: start: 20220912, end: 20220915
  3. IBRANCE [Suspect]
     Active Substance: PALBOCICLIB
     Dosage: 125 MG, CYCLIC (TAKE 1 CAPSULE DAILY ON DAYS 1 THROUGH 21 THEN 7 DAYS OFF)
     Dates: start: 20220922, end: 2022
  4. IBRANCE [Suspect]
     Active Substance: PALBOCICLIB
     Dosage: 125 MG, CYCLIC (DAILY ON DAYS 1 THROUGH 21 OF EACH 28-DAY CYCLE)
     Route: 048
     Dates: start: 20220815, end: 2022
  5. IBRANCE [Suspect]
     Active Substance: PALBOCICLIB
     Dosage: 100 MG, CYCLIC (DAILY FOR 21 DAYS ON AND 7 DAYS OFF)
     Dates: start: 2022
  6. FLONASE ALLERGY RELIEF [Concomitant]
     Active Substance: FLUTICASONE PROPIONATE
     Dosage: UNK
  7. SYNTHROID [Concomitant]
     Active Substance: LEVOTHYROXINE SODIUM
     Dosage: UNK
  8. FEMARA [Concomitant]
     Active Substance: LETROZOLE
     Dosage: UNK
  9. MAGNESIUM [Concomitant]
     Active Substance: MAGNESIUM
     Dosage: UNK
  10. BENADRYL [Concomitant]
     Active Substance: DIPHENHYDRAMINE HYDROCHLORIDE
     Dosage: UNK
  11. VITAMIN C [Concomitant]
     Active Substance: ASCORBIC ACID
     Dosage: UNK
  12. CHOLECALCIFEROL [Concomitant]
     Active Substance: CHOLECALCIFEROL
     Dosage: UNK
  13. LETROZOLE [Concomitant]
     Active Substance: LETROZOLE
     Dosage: UNK
  14. BIOTIN [Concomitant]
     Active Substance: BIOTIN
     Dosage: UNK
  15. LEVOTHYROXINE SODIUM [Concomitant]
     Active Substance: LEVOTHYROXINE SODIUM
     Dosage: UNK
  16. MAGNESIUM OXIDE [Concomitant]
     Active Substance: MAGNESIUM OXIDE
     Dosage: UNK
  17. VITAMIN B-1 [THIAMINE HYDROCHLORIDE] [Concomitant]
     Dosage: UNK
  18. VITAMIN D3 [Concomitant]
     Active Substance: CHOLECALCIFEROL
     Dosage: UNK

REACTIONS (21)
  - Brain operation [Unknown]
  - Oral herpes [Recovering/Resolving]
  - Cystitis [Recovering/Resolving]
  - Micturition urgency [Recovering/Resolving]
  - Fatigue [Recovering/Resolving]
  - Product dose omission in error [Unknown]
  - Alopecia [Not Recovered/Not Resolved]
  - COVID-19 [Unknown]
  - Pruritus [Unknown]
  - Blister [Recovered/Resolved]
  - Skin exfoliation [Unknown]
  - Nasal congestion [Unknown]
  - Sneezing [Unknown]
  - Drug hypersensitivity [Unknown]
  - Rash papular [Unknown]
  - Upper-airway cough syndrome [Not Recovered/Not Resolved]
  - Lip dry [Unknown]
  - Lip exfoliation [Unknown]
  - Memory impairment [Unknown]
  - Bronchitis [Unknown]
  - Rhinalgia [Unknown]

NARRATIVE: CASE EVENT DATE: 20220101
